FAERS Safety Report 9940400 (Version 1)
Quarter: 2014Q1

REPORT INFORMATION
  Report Type: Spontaneous
  Country: US (occurrence: US)
  Receive Date: 20140303
  Receipt Date: 20140303
  Transmission Date: 20141002
  Serious: Yes (Death)
  Sender: FDA-Public Use
  Company Number: US-BANPHARM-20142167

PATIENT
  Age: 43 Year
  Sex: Male

DRUGS (3)
  1. ETHANOL [Suspect]
  2. SALICYLATE [Suspect]
  3. DIPHENHYDRAMINE UNKNOWN PRODUCT [Concomitant]

REACTIONS (1)
  - Death [Fatal]
